FAERS Safety Report 7473633-6 (Version None)
Quarter: 2011Q2

REPORT INFORMATION
  Report Type: 
  Country: None (occurrence: None)
  Receive Date: 20110511
  Receipt Date: 20110118
  Transmission Date: 20111010
  Serious: Yes (Death)
  Sender: FDA-Public Use
  Company Number: PHHY2011AU22507

PATIENT
  Sex: Female

DRUGS (2)
  1. RADIATION [Concomitant]
     Dosage: UNK
  2. ZOMETA [Suspect]
     Dosage: UNK

REACTIONS (1)
  - DEATH [None]
